FAERS Safety Report 5834069-4 (Version None)
Quarter: 2008Q3

REPORT INFORMATION
  Report Type: 
  Country: None (occurrence: None)
  Receive Date: 20080801
  Receipt Date: 20080801
  Transmission Date: 20090109
  Serious: No
  Sender: FDA-Public Use
  Company Number: None

PATIENT
  Age: 70 Year
  Sex: Male
  Weight: 62.1 kg

DRUGS (1)
  1. LORAZEPAM [Suspect]
     Dosage: 5 MG ONCE PO
     Route: 048
     Dates: start: 20080719, end: 20080719

REACTIONS (5)
  - ACCIDENTAL EXPOSURE [None]
  - MENTAL STATUS CHANGES [None]
  - SEDATION [None]
  - SOMNOLENCE [None]
  - WRONG DRUG ADMINISTERED [None]
